FAERS Safety Report 21511501 (Version 1)
Quarter: 2022Q4

REPORT INFORMATION
  Report Type: Report from Study
  Country: US (occurrence: US)
  Receive Date: 20221027
  Receipt Date: 20221027
  Transmission Date: 20230112
  Serious: No
  Sender: FDA-Public Use
  Company Number: US-ABBVIE-4159075

PATIENT
  Sex: Male

DRUGS (1)
  1. IMBRUVICA [Suspect]
     Active Substance: IBRUTINIB
     Indication: Chronic lymphocytic leukaemia
     Route: 048
     Dates: start: 202009

REACTIONS (7)
  - Palpitations [Unknown]
  - Inflammation [Unknown]
  - Arthralgia [Unknown]
  - Erythema [Unknown]
  - Fatigue [Unknown]
  - White blood cell count decreased [Unknown]
  - Diabetes mellitus [Unknown]
